FAERS Safety Report 9848742 (Version 2)
Quarter: 2014Q1

REPORT INFORMATION
  Report Type: Spontaneous
  Country: US (occurrence: US)
  Receive Date: 20140128
  Receipt Date: 20140128
  Transmission Date: 20141002
  Serious: Yes (Other)
  Sender: FDA-Public Use
  Company Number: US-EISAI INC-AP356-00395-SPO-US

PATIENT
  Age: 51 Year
  Sex: Female
  Weight: 74.09 kg

DRUGS (2)
  1. BELVIQ (LORCASERIN HYDROCHLORIDE) [Suspect]
     Indication: WEIGHT DECREASED
     Route: 048
     Dates: start: 20140103, end: 20140108
  2. BENADRYL [Concomitant]
     Route: 048
     Dates: start: 20140103

REACTIONS (2)
  - Lip swelling [Recovered/Resolved]
  - Skin exfoliation [Recovered/Resolved]
